FAERS Safety Report 16613876 (Version 2)
Quarter: 2019Q3

REPORT INFORMATION
  Report Type: Spontaneous
  Country: US (occurrence: US)
  Receive Date: 20190723
  Receipt Date: 20190813
  Transmission Date: 20191004
  Serious: No
  Sender: FDA-Public Use
  Company Number: US-BIOGEN-2019BI00764754

PATIENT
  Age: 30 Year
  Sex: Female

DRUGS (1)
  1. AVONEX [Suspect]
     Active Substance: INTERFERON BETA-1A
     Indication: MULTIPLE SCLEROSIS
     Route: 030
     Dates: start: 20080325

REACTIONS (6)
  - Influenza like illness [Recovered/Resolved]
  - Gastrooesophageal reflux disease [Unknown]
  - Tension headache [Recovered/Resolved]
  - Ulcer [Unknown]
  - Anxiety [Unknown]
  - Herpes zoster [Unknown]

NARRATIVE: CASE EVENT DATE: 20080325
